FAERS Safety Report 13938277 (Version 2)
Quarter: 2018Q1

REPORT INFORMATION
  Report Type: Spontaneous
  Country: US (occurrence: US)
  Receive Date: 20170905
  Receipt Date: 20180329
  Transmission Date: 20180508
  Serious: No
  Sender: FDA-Public Use
  Company Number: US-009507513-1708USA008494

PATIENT

DRUGS (7)
  1. LYRICA [Concomitant]
     Active Substance: PREGABALIN
     Dosage: UNK, UNKNOWN
     Route: 065
  2. BACLOFEN. [Concomitant]
     Active Substance: BACLOFEN
     Dosage: UNK, UNKNOWN
     Route: 065
  3. ZEPATIER [Suspect]
     Active Substance: ELBASVIR\GRAZOPREVIR
     Indication: HEPATITIS C
     Dosage: ONE TABLET, EVERY DAY, TOTAL DAILY 50-100 MG
     Route: 048
     Dates: start: 201707
  4. FUROSEMIDE. [Concomitant]
     Active Substance: FUROSEMIDE
  5. HYDROCODONE BITARTRATE. [Concomitant]
     Active Substance: HYDROCODONE BITARTRATE
     Dosage: UNK, UNKNOWN
     Route: 065
  6. COZAAR [Suspect]
     Active Substance: LOSARTAN POTASSIUM
     Dosage: UNK
     Route: 048
     Dates: end: 2017
  7. EDARBI [Concomitant]
     Active Substance: AZILSARTAN KAMEDOXOMIL
     Dosage: UNK UNK, UNKNOWN
     Dates: start: 2017

REACTIONS (6)
  - Dyspnoea [Unknown]
  - Nausea [Unknown]
  - Fall [Unknown]
  - Hyperhidrosis [Unknown]
  - Dizziness [Unknown]
  - Abdominal discomfort [Unknown]
